FAERS Safety Report 17892488 (Version 1)
Quarter: 2020Q2

REPORT INFORMATION
  Report Type: Other
  Country: US (occurrence: US)
  Receive Date: 20200612
  Receipt Date: 20200612
  Transmission Date: 20200714
  Serious: Yes (Other)
  Sender: FDA-Public Use
  Company Number: US-MLV PHARMA LLC-000005

PATIENT
  Sex: Male

DRUGS (4)
  1. TRIAMCINOLONE [Suspect]
     Active Substance: TRIAMCINOLONE
     Indication: CLUSTER HEADACHE
     Dosage: 1 ML OF TRIAMCINOLONE 40 MG.
  2. TRIAMCINOLONE [Suspect]
     Active Substance: TRIAMCINOLONE
     Indication: NERVE BLOCK
     Dosage: 1 ML OF TRIAMCINOLONE 40 MG.
  3. LIDOCAINE. [Suspect]
     Active Substance: LIDOCAINE
     Indication: CLUSTER HEADACHE
     Dosage: 9 ML OF 1% LIDOCAINE.
  4. LIDOCAINE. [Suspect]
     Active Substance: LIDOCAINE
     Indication: NERVE BLOCK
     Dosage: 9 ML OF 1% LIDOCAINE.

REACTIONS (1)
  - Osteonecrosis [Unknown]
